FAERS Safety Report 12436936 (Version 1)
Quarter: 2016Q2

REPORT INFORMATION
  Report Type: Spontaneous
  Country: US (occurrence: None)
  Receive Date: 20160603
  Receipt Date: 20160603
  Transmission Date: 20160815
  Serious: Yes (Life-Threatening, Other)
  Sender: FDA-Public Use
  Company Number: None

PATIENT
  Age: 37 Year
  Sex: Female
  Weight: 95.26 kg

DRUGS (1)
  1. TRAMADOL. [Suspect]
     Active Substance: TRAMADOL
     Indication: LOWER LIMB FRACTURE

REACTIONS (7)
  - Mental disorder [None]
  - Pain [None]
  - Drug dispensing error [None]
  - Wrong drug administered [None]
  - Gait disturbance [None]
  - General physical health deterioration [None]
  - Headache [None]
